FAERS Safety Report 9722966 (Version 1)
Quarter: 2013Q4

REPORT INFORMATION
  Report Type: Spontaneous
  Country: US (occurrence: None)
  Receive Date: 20131127
  Receipt Date: 20131127
  Transmission Date: 20140711
  Serious: No
  Sender: FDA-Public Use
  Company Number: None

PATIENT
  Age: 72 Year
  Sex: Male
  Weight: 74.7 kg

DRUGS (2)
  1. CARBOPLATIN [Suspect]
     Dates: start: 20131030, end: 20131113
  2. PACLITAXEL [Suspect]
     Dates: end: 20131113

REACTIONS (2)
  - Neutropenia [None]
  - Leukopenia [None]
